FAERS Safety Report 6031780-X (Version None)
Quarter: 2009Q1

REPORT INFORMATION
  Report Type: 
  Country: None (occurrence: None)
  Receive Date: 20090108
  Receipt Date: 20090105
  Transmission Date: 20090719
  Serious: Yes (Hospitalization)
  Sender: FDA-Public Use
  Company Number: US-JNJFOC-20090100737

PATIENT
  Sex: Male
  Weight: 62.14 kg

DRUGS (6)
  1. DURAGESIC-100 [Suspect]
     Indication: PAIN
     Route: 062
  2. COUMADIN [Concomitant]
     Indication: THROMBOSIS
     Route: 065
  3. NEURONTIN [Concomitant]
     Indication: NEUROPATHY PERIPHERAL
     Route: 065
  4. NEXIUM [Concomitant]
     Indication: GASTRIC DISORDER
     Route: 065
  5. NOVOLOG [Concomitant]
     Indication: DIABETES MELLITUS
     Route: 058
  6. XANAX [Concomitant]
     Indication: ANXIETY
     Route: 048

REACTIONS (7)
  - ABDOMINAL PAIN [None]
  - ASTHENIA [None]
  - BREAKTHROUGH PAIN [None]
  - DIARRHOEA [None]
  - DRUG PRESCRIBING ERROR [None]
  - INAPPROPRIATE SCHEDULE OF DRUG ADMINISTRATION [None]
  - PNEUMONIA [None]
